FAERS Safety Report 16774784 (Version 1)
Quarter: 2019Q3

REPORT INFORMATION
  Report Type: Spontaneous
  Country: GB (occurrence: GB)
  Receive Date: 20190905
  Receipt Date: 20190905
  Transmission Date: 20191005
  Serious: Yes (Other)
  Sender: FDA-Public Use
  Company Number: GB-TEVA-2019-GB-1101050

PATIENT
  Age: 16 Year
  Sex: Female
  Weight: 71 kg

DRUGS (8)
  1. DUORESP SPIROMAX [Concomitant]
     Active Substance: BUDESONIDE\FORMOTEROL
     Dates: start: 20180815
  2. TERBUTALINE [Concomitant]
     Active Substance: TERBUTALINE
     Route: 055
     Dates: start: 20180815
  3. PROPYLTHIOURACIL. [Suspect]
     Active Substance: PROPYLTHIOURACIL
     Dates: start: 20190626
  4. EMLA [Concomitant]
     Active Substance: LIDOCAINE\PRILOCAINE
     Dosage: AS DIRECTED
     Dates: start: 20190626
  5. SALBUTAMOL [Concomitant]
     Active Substance: ALBUTEROL
     Route: 055
     Dates: start: 20180815, end: 20190717
  6. CARBIMAZOLE [Concomitant]
     Active Substance: CARBIMAZOLE
     Dosage: UNTIL ENDOCRINOLOGY REVIEW
     Dates: start: 20190507, end: 20190626
  7. RIGEVIDON [Concomitant]
     Dosage: FOR 21 DAYS THEN 7 DAY BREAK
     Dates: start: 20190423
  8. CITALOPRAM [Concomitant]
     Active Substance: CITALOPRAM HYDROBROMIDE
     Dates: start: 20190107, end: 20190626

REACTIONS (1)
  - Insomnia [Not Recovered/Not Resolved]
